FAERS Safety Report 18509211 (Version 2)
Quarter: 2020Q4

REPORT INFORMATION
  Report Type: Spontaneous
  Country: KZ (occurrence: KZ)
  Receive Date: 20201117
  Receipt Date: 20201223
  Transmission Date: 20210114
  Serious: No
  Sender: FDA-Public Use
  Company Number: KZ-SA-2020SA276399

PATIENT

DRUGS (6)
  1. DOPEGYT [Concomitant]
     Active Substance: METHYLDOPA
     Indication: HYPERTENSION
     Dosage: TIMES A DAY, 250 MG (FROM THE FIRST TRIMESTER, PREVIOUSLY SHE RECEIVED 250 MG
     Route: 065
  2. HUMALOG [Concomitant]
     Active Substance: INSULIN LISPRO
     Indication: GESTATIONAL DIABETES
     Dosage: BEFORE MEALS
  3. HUMALOG [Concomitant]
     Active Substance: INSULIN LISPRO
     Dosage: STARTED WITH 4 UNITS IN THE 1ST TRIMESTER
  4. CARDIOMAGNYL [Concomitant]
     Active Substance: ASPIRIN\MAGNESIUM HYDROXIDE
     Indication: HYPERTENSION
     Dosage: 75 MG, QD
  5. LEVEMIR [Concomitant]
     Active Substance: INSULIN DETEMIR
     Indication: GESTATIONAL DIABETES
     Dosage: 18 U, HS (BEGINNING FROM THE 1ST TRIMESTER)
  6. CLEXANE [Suspect]
     Active Substance: ENOXAPARIN SODIUM
     Indication: ANTICOAGULANT THERAPY
     Dosage: FROM THE FIRST MONTH OF PREGNANCY
     Route: 058

REACTIONS (1)
  - Exposure during pregnancy [Unknown]
